FAERS Safety Report 18365955 (Version 15)
Quarter: 2024Q1

REPORT INFORMATION
  Report Type: Spontaneous
  Country: US (occurrence: US)
  Receive Date: 20201009
  Receipt Date: 20240108
  Transmission Date: 20240410
  Serious: No
  Sender: FDA-Public Use
  Company Number: US-PFIZER INC-2020387375

PATIENT
  Age: 76 Year
  Sex: Female
  Weight: 94.35 kg

DRUGS (12)
  1. XELJANZ XR [Suspect]
     Active Substance: TOFACITINIB CITRATE
     Indication: Rheumatoid arthritis
     Dosage: 11 MG, DAILY
     Route: 048
  2. XELJANZ XR [Suspect]
     Active Substance: TOFACITINIB CITRATE
     Indication: Pain in extremity
     Dosage: 11 MG, 1X/DAY (ONE DOSE PER DAY WITH WATER OR JUICE AFTER SHE EATS IN THE MORNING)
  3. XELJANZ XR [Suspect]
     Active Substance: TOFACITINIB CITRATE
     Indication: Joint swelling
     Dosage: 11 MG
  4. XELJANZ XR [Suspect]
     Active Substance: TOFACITINIB CITRATE
     Indication: Pain
     Dosage: 11 MG, 1X/DAY
     Route: 048
  5. XELJANZ XR [Suspect]
     Active Substance: TOFACITINIB CITRATE
     Dosage: 11 MG, 1X/DAY
  6. PREDNISONE [Concomitant]
     Active Substance: PREDNISONE
     Indication: Swelling
     Dosage: 5 MG, 1X/DAY (SHE CAN TAKE 2 IF SHE IS IN PAIN, BUT MOSTLY JUST TAKES ONE PER DAY)
     Dates: start: 1991
  7. PREDNISONE [Concomitant]
     Active Substance: PREDNISONE
     Indication: Pain
     Dosage: 5 MG, 1X/DAY (IF ARTHRITIS BOTHERED HER A LOT CAN TAKE TWO A DAY)
  8. PREDNISONE [Concomitant]
     Active Substance: PREDNISONE
     Indication: Arthritis
  9. METOPROLOL [Concomitant]
     Active Substance: METOPROLOL
     Indication: Hypertension
     Dosage: 25 MG, 2X/DAY
     Route: 048
  10. HYDRALAZINE [Concomitant]
     Active Substance: HYDRALAZINE HYDROCHLORIDE
     Indication: Hypertension
     Dosage: 50 MG, 2X/DAY
     Route: 048
  11. METHOTREXATE [Concomitant]
     Active Substance: METHOTREXATE
     Indication: Arthritis
     Dosage: 2.5 MG, 3 OF THEM ON WEDNESDAY
  12. GABAPENTIN [Concomitant]
     Active Substance: GABAPENTIN
     Indication: Neuropathy peripheral
     Dosage: 300MG ONCE PER WEEK AT NIGHT

REACTIONS (9)
  - Malaise [Unknown]
  - Finger deformity [Unknown]
  - Foot deformity [Unknown]
  - Hand deformity [Unknown]
  - Condition aggravated [Unknown]
  - Interferon gamma release assay positive [Unknown]
  - Pain [Unknown]
  - Peripheral swelling [Unknown]
  - Hypoaesthesia [Unknown]

NARRATIVE: CASE EVENT DATE: 20210901
